FAERS Safety Report 25576392 (Version 1)
Quarter: 2025Q3

REPORT INFORMATION
  Report Type: Spontaneous
  Country: US (occurrence: US)
  Receive Date: 20250718
  Receipt Date: 20250718
  Transmission Date: 20251020
  Serious: No
  Sender: SANOFI AVENTIS
  Company Number: US-SANOFI-02589403

PATIENT
  Age: 86 Year
  Sex: Male

DRUGS (3)
  1. LANTUS SOLOSTAR [Suspect]
     Active Substance: INSULIN GLARGINE
     Indication: Type 2 diabetes mellitus
     Dosage: 5 IU, QD
     Route: 065
     Dates: start: 202507, end: 202507
  2. LANTUS SOLOSTAR [Suspect]
     Active Substance: INSULIN GLARGINE
     Dosage: 7 IU, QD
     Route: 065
     Dates: start: 202507, end: 202507
  3. LANTUS SOLOSTAR [Suspect]
     Active Substance: INSULIN GLARGINE
     Dosage: 10 IU, QD
     Route: 065
     Dates: start: 202507

REACTIONS (2)
  - Blood glucose increased [Unknown]
  - Device defective [Unknown]

NARRATIVE: CASE EVENT DATE: 20250701
